FAERS Safety Report 9423570 (Version 5)
Quarter: 2015Q3

REPORT INFORMATION
  Report Type: Report from Study
  Country: JP (occurrence: JP)
  Receive Date: 20130726
  Receipt Date: 20150722
  Transmission Date: 20151125
  Serious: Yes (Hospitalization, Other)
  Sender: FDA-Public Use
  Company Number: JP-GLAXOSMITHKLINE-B0910303A

PATIENT
  Age: 54 Year
  Sex: Male
  Weight: 66 kg

DRUGS (4)
  1. UNKNOWNDRUG [Concomitant]
     Active Substance: UNSPECIFIED INGREDIENT
     Indication: HYPERURICAEMIA
     Route: 048
  2. PAZOPANIB [Suspect]
     Active Substance: PAZOPANIB
     Indication: LIPOSARCOMA
     Route: 048
     Dates: start: 20130416, end: 20130610
  3. PAZOPANIB [Suspect]
     Active Substance: PAZOPANIB
     Indication: LIPOSARCOMA
     Route: 048
     Dates: start: 20130625, end: 20130706
  4. PAZOPANIB [Suspect]
     Active Substance: PAZOPANIB
     Indication: LIPOSARCOMA
     Route: 048
     Dates: start: 20130611, end: 20130624

REACTIONS (3)
  - Diarrhoea [Recovered/Resolved]
  - Retinal detachment [Recovered/Resolved with Sequelae]
  - Hypertension [Recovered/Resolved]

NARRATIVE: CASE EVENT DATE: 20130423
